FAERS Safety Report 8494798-3 (Version None)
Quarter: 2012Q3

REPORT INFORMATION
  Report Type: 
  Country: None (occurrence: None)
  Receive Date: 20120709
  Receipt Date: 20120703
  Transmission Date: 20120928
  Serious: Yes (Hospitalization)
  Sender: FDA-Public Use
  Company Number: JP-BAYER-2012-061609

PATIENT
  Age: 70 Year
  Sex: Male
  Weight: 51 kg

DRUGS (12)
  1. ASPIRIN [Suspect]
     Indication: THROMBOSIS PROPHYLAXIS
     Dosage: DAILY DOSE 100 MG
     Route: 048
     Dates: start: 19951030, end: 20111207
  2. WARFARIN POTASSIUM [Interacting]
     Dosage: DAILY DOSE 2.75 MG
     Route: 048
     Dates: start: 20010104, end: 20111206
  3. WARFARIN POTASSIUM [Interacting]
     Dosage: DAILY DOSE 2 MG
     Route: 048
     Dates: start: 20111207, end: 20111208
  4. WARFARIN POTASSIUM [Interacting]
     Dosage: DAILY DOSE 2.75 MG
     Route: 048
     Dates: start: 20111226
  5. ASPIRIN [Interacting]
     Dosage: DAILY DOSE 100 MG
     Route: 048
     Dates: start: 20111216
  6. AMOXICILLIN [Interacting]
     Indication: INFECTION PROPHYLAXIS
     Dosage: DAILY DOSE 800 MG
     Route: 048
     Dates: start: 20111128, end: 20111128
  7. AMOXICILLIN [Interacting]
  8. WARFARIN POTASSIUM [Interacting]
     Dosage: DAILY DOSE 1.75 MG
     Route: 048
     Dates: start: 20111208, end: 20111226
  9. WARFARIN POTASSIUM [Interacting]
     Indication: THROMBOSIS PROPHYLAXIS
     Dosage: UNK
     Route: 048
     Dates: start: 19951030, end: 20010104
  10. AMOXICILLIN [Interacting]
     Dosage: DAILY DOSE 300 MG
     Route: 048
     Dates: start: 20111128, end: 20111208
  11. LOXONIN [Interacting]
     Indication: ANALGESIC THERAPY
     Dosage: DAILY DOSE 120 MG
     Route: 048
     Dates: start: 20111128, end: 20111201
  12. MUCOSTA [Concomitant]
     Indication: GASTRITIS
     Dosage: DAILY DOSE 200 MG
     Route: 048
     Dates: start: 20111128, end: 20111201

REACTIONS (2)
  - POST PROCEDURAL HAEMORRHAGE [None]
  - INTERNATIONAL NORMALISED RATIO INCREASED [None]
